FAERS Safety Report 5925711-8 (Version None)
Quarter: 2008Q4

REPORT INFORMATION
  Report Type: 
  Country: None (occurrence: None)
  Receive Date: 20081021
  Receipt Date: 20081013
  Transmission Date: 20090506
  Serious: Yes (Other)
  Sender: FDA-Public Use
  Company Number: GB-ASTRAZENECA-2008GB01946

PATIENT
  Age: 44 Year
  Sex: Female

DRUGS (1)
  1. ZOLADEX [Suspect]
     Indication: PREMENSTRUAL SYNDROME
     Route: 058

REACTIONS (2)
  - DEPRESSION [None]
  - SUICIDAL IDEATION [None]
